FAERS Safety Report 23405094 (Version 1)
Quarter: 2024Q1

REPORT INFORMATION
  Report Type: Spontaneous
  Country: US (occurrence: None)
  Receive Date: 20240112
  Receipt Date: 20240112
  Transmission Date: 20240410
  Serious: Yes (Other)
  Sender: FDA-Public Use
  Company Number: None

PATIENT
  Sex: Female

DRUGS (5)
  1. XOLAIR [Suspect]
     Active Substance: OMALIZUMAB
  2. BENZONATATE [Concomitant]
     Active Substance: BENZONATATE
  3. DUPIXENT [Concomitant]
     Active Substance: DUPILUMAB
  4. MONTELUKAST [Concomitant]
     Active Substance: MONTELUKAST SODIUM
  5. PREDNISONE [Concomitant]

REACTIONS (3)
  - Asthma [None]
  - Quality of life decreased [None]
  - Product dose omission issue [None]
